FAERS Safety Report 23972676 (Version 1)
Quarter: 2024Q2

REPORT INFORMATION
  Report Type: Spontaneous
  Country: US (occurrence: None)
  Receive Date: 20240613
  Receipt Date: 20240613
  Transmission Date: 20240716
  Serious: Yes (Hospitalization)
  Sender: FDA-Public Use
  Company Number: None

PATIENT
  Sex: Male
  Weight: 54.4 kg

DRUGS (2)
  1. CARBOPLATIN [Suspect]
     Active Substance: CARBOPLATIN
  2. PACLITAXEL (TAXOL) [Concomitant]

REACTIONS (10)
  - Atrial fibrillation [None]
  - Troponin increased [None]
  - Hypotension [None]
  - Dehydration [None]
  - Hypophagia [None]
  - Oesophagitis [None]
  - Mucosal inflammation [None]
  - Pancytopenia [None]
  - Emphysema [None]
  - Asbestosis [None]

NARRATIVE: CASE EVENT DATE: 20240531
